FAERS Safety Report 24674219 (Version 1)
Quarter: 2024Q4

REPORT INFORMATION
  Report Type: Spontaneous
  Country: US (occurrence: US)
  Receive Date: 20241128
  Receipt Date: 20241128
  Transmission Date: 20250115
  Serious: Yes (Other)
  Sender: STRIDES
  Company Number: US-STRIDES ARCOLAB LIMITED-2024SP015532

PATIENT
  Age: 70 Year
  Sex: Male

DRUGS (15)
  1. LISINOPRIL [Suspect]
     Active Substance: LISINOPRIL
     Indication: Hypertension
     Dosage: 40 MILLIGRAM, TID
     Route: 065
  2. HYDRALAZINE HYDROCHLORIDE [Suspect]
     Active Substance: HYDRALAZINE HYDROCHLORIDE
     Indication: Hypertension
     Dosage: 100 MILLIGRAM, TID
     Route: 065
  3. HYDRALAZINE HYDROCHLORIDE [Suspect]
     Active Substance: HYDRALAZINE HYDROCHLORIDE
     Dosage: UNK, (DOSE WAS REDUCED TO HALF)
     Route: 065
  4. TORSEMIDE [Suspect]
     Active Substance: TORSEMIDE
     Indication: Hypertension
     Dosage: 10 MILLIGRAM, QD
     Route: 065
  5. TORSEMIDE [Suspect]
     Active Substance: TORSEMIDE
     Dosage: UNK, (AGAIN INITIATED)
     Route: 065
  6. CLONIDINE [Suspect]
     Active Substance: CLONIDINE
     Indication: Hypertension
     Dosage: 0.3 MICROGRAM, TID
     Route: 065
  7. CLONIDINE [Suspect]
     Active Substance: CLONIDINE
     Dosage: UNK, (DOSE WAS REDUCED TO HALF)
     Route: 065
  8. CLONIDINE [Suspect]
     Active Substance: CLONIDINE
     Dosage: UNK, (DOSE WAS DECREASED)
     Route: 065
  9. SPIRONOLACTONE [Suspect]
     Active Substance: SPIRONOLACTONE
     Indication: Hypertension
     Dosage: UNK
     Route: 065
  10. HYDROCHLOROTHIAZIDE [Suspect]
     Active Substance: HYDROCHLOROTHIAZIDE
     Indication: Hypertension
     Dosage: UNK
     Route: 065
  11. LABETALOL [Suspect]
     Active Substance: LABETALOL
     Indication: Hypertension
     Dosage: 800 MILLIGRAM, BID
     Route: 065
  12. LABETALOL [Suspect]
     Active Substance: LABETALOL
     Dosage: UNK, (DOSE REDUCED TO HALF)
     Route: 065
  13. LABETALOL [Suspect]
     Active Substance: LABETALOL
     Dosage: UNK, (AGAIN INITIATED)
     Route: 065
  14. AMILORIDE [Suspect]
     Active Substance: AMILORIDE
     Indication: Hypertension
     Dosage: 5 MILLIGRAM, QD
     Route: 065
  15. AMILORIDE [Suspect]
     Active Substance: AMILORIDE
     Dosage: UNK, (AGAIN INITIATED)
     Route: 065

REACTIONS (2)
  - Withdrawal hypertension [Recovered/Resolved]
  - Hypotension [Recovered/Resolved]
